FAERS Safety Report 8811960 (Version 1)
Quarter: 2012Q4

REPORT INFORMATION
  Report Type: 
  Country: US (occurrence: US)
  Receive Date: 20120927
  Receipt Date: 20120927
  Transmission Date: 20130627
  Serious: Yes (Death)
  Sender: FDA-Public Use
  Company Number: US-INCYTE CORPORATION-2012IN001824

PATIENT
  Sex: Male

DRUGS (6)
  1. JAKAFI [Suspect]
     Dosage: 20 mg, bid
     Route: 048
  2. TRICOR [Concomitant]
  3. LISINOPRIL [Concomitant]
  4. AMLODIPINE [Concomitant]
  5. METOPROLOL [Concomitant]
  6. DOXAZOSIN [Concomitant]

REACTIONS (1)
  - Death [Fatal]
